FAERS Safety Report 18618276 (Version 1)
Quarter: 2020Q4

REPORT INFORMATION
  Report Type: Spontaneous
  Country: US (occurrence: US)
  Receive Date: 20201215
  Receipt Date: 20201215
  Transmission Date: 20210114
  Serious: Yes (Hospitalization)
  Sender: FDA-Public Use
  Company Number: None

PATIENT
  Age: 33 Year
  Sex: Female

DRUGS (4)
  1. DULOXETINE 30MG DR CAPSULES [Concomitant]
  2. ENDARI [Suspect]
     Active Substance: GLUTAMINE
     Indication: SICKLE CELL DISEASE
  3. GABAPENTIN 300MG CAPSULES [Concomitant]
     Active Substance: GABAPENTIN
  4. HYDROXYUREA 500MG CAPSULES [Concomitant]

REACTIONS (1)
  - Pain [None]
